FAERS Safety Report 19181613 (Version 2)
Quarter: 2021Q2

REPORT INFORMATION
  Report Type: Report from Study
  Country: IN (occurrence: IN)
  Receive Date: 20210426
  Receipt Date: 20210630
  Transmission Date: 20210717
  Serious: Yes (Other)
  Sender: FDA-Public Use
  Company Number: NVSC2021IN085912

PATIENT
  Age: 55 Year
  Sex: Male

DRUGS (1)
  1. VOTRIENT [Suspect]
     Active Substance: PAZOPANIB HYDROCHLORIDE
     Indication: SOFT TISSUE SARCOMA
     Dosage: 400 MG, QD
     Route: 065
     Dates: start: 20200902

REACTIONS (4)
  - Gait disturbance [Not Recovered/Not Resolved]
  - Opisthotonus [Not Recovered/Not Resolved]
  - Accelerated hypertension [Recovering/Resolving]
  - Nystagmus [Unknown]

NARRATIVE: CASE EVENT DATE: 20210401
